FAERS Safety Report 22638764 (Version 1)
Quarter: 2023Q2

REPORT INFORMATION
  Report Type: Spontaneous
  Country: US (occurrence: US)
  Receive Date: 20230626
  Receipt Date: 20230626
  Transmission Date: 20230721
  Serious: No
  Sender: FDA-Public Use
  Company Number: US-GLENMARK PHARMACEUTICALS-2023GMK078953

PATIENT

DRUGS (1)
  1. ETHINYL ESTRADIOL\LEVONORGESTREL [Suspect]
     Active Substance: ETHINYL ESTRADIOL\LEVONORGESTREL
     Indication: Oral contraception
     Dosage: 1 DOSAGE FORM, QD
     Route: 048
     Dates: start: 202210

REACTIONS (3)
  - Product dose omission issue [Unknown]
  - Rash [Not Recovered/Not Resolved]
  - Acne [Not Recovered/Not Resolved]
